FAERS Safety Report 8367550-7 (Version None)
Quarter: 2012Q2

REPORT INFORMATION
  Report Type: 
  Country: None (occurrence: None)
  Receive Date: 20120517
  Receipt Date: 20120508
  Transmission Date: 20120825
  Serious: Yes (Hospitalization, Other)
  Sender: FDA-Public Use
  Company Number: US-ASTRAZENECA-2012SE16480

PATIENT
  Age: 74 Year
  Sex: Female

DRUGS (22)
  1. METOPROLOL [Suspect]
     Route: 048
  2. FLUCONAZOLE [Concomitant]
     Route: 048
     Dates: start: 20100308, end: 20110325
  3. DESOXIMETASONE [Concomitant]
     Dates: start: 20091127, end: 20120416
  4. TYLENOL (CAPLET) [Concomitant]
     Route: 048
     Dates: start: 20060605
  5. ENALAPRIL MALEATE [Concomitant]
     Route: 048
     Dates: start: 20100921, end: 20110830
  6. OMEPRAZOLE [Suspect]
     Route: 048
  7. CHOLECALCIFEROL [Concomitant]
     Route: 048
     Dates: start: 20100315
  8. CARBOXYMETHYLCELLUL-GLYCERIN [Concomitant]
     Dosage: 1 DROP UP TO 6 TIMES DAILY EACH EYE
     Route: 031
     Dates: start: 20090928
  9. NEXIUM [Suspect]
     Route: 048
     Dates: start: 20040607, end: 20060210
  10. NEXIUM [Suspect]
     Route: 048
     Dates: start: 20100921, end: 20110830
  11. NEXIUM [Suspect]
     Route: 048
     Dates: start: 20110830
  12. CLONAZEPAM [Concomitant]
     Route: 048
     Dates: start: 20100611, end: 20100921
  13. CLONAZEPAM [Concomitant]
     Dosage: 1 DF EVERY MORNING (IN ADDITION TO HER 5 TID + 2 MG TAB AT HS)
     Route: 048
     Dates: start: 20100308, end: 20110325
  14. NEXIUM [Suspect]
     Route: 048
     Dates: start: 20070227, end: 20091102
  15. CLONAZEPAM [Concomitant]
     Route: 048
     Dates: start: 20100611, end: 20110325
  16. ENALAPRIL MALEATE [Concomitant]
     Route: 048
     Dates: start: 20091103, end: 20100921
  17. MULTI-VITAMIN [Concomitant]
     Route: 048
     Dates: start: 20100315
  18. ESTRADIOL [Concomitant]
     Route: 048
     Dates: start: 20091102, end: 20110830
  19. CYANOCOBALAMIN [Concomitant]
     Route: 048
     Dates: start: 20100315
  20. SIMETHICONE [Concomitant]
     Route: 048
     Dates: start: 20100315
  21. HYDROCHLOROTHIAZIDE [Concomitant]
     Route: 048
     Dates: start: 20100308, end: 20110110
  22. CLONAZEPAM [Concomitant]
     Route: 048
     Dates: start: 20100611, end: 20110325

REACTIONS (15)
  - DYSPNOEA [None]
  - GASTROOESOPHAGITIS [None]
  - ULCER HAEMORRHAGE [None]
  - DIARRHOEA [None]
  - ANAL ABSCESS [None]
  - WEIGHT DECREASED [None]
  - ULCER [None]
  - DIZZINESS [None]
  - OFF LABEL USE [None]
  - FATIGUE [None]
  - IRON DEFICIENCY ANAEMIA [None]
  - GASTRITIS [None]
  - OESOPHAGEAL STENOSIS [None]
  - NIGHTMARE [None]
  - EPIGASTRIC DISCOMFORT [None]
